FAERS Safety Report 5767023-1 (Version None)
Quarter: 2008Q2

REPORT INFORMATION
  Report Type: 
  Country: None (occurrence: None)
  Receive Date: 20080609
  Receipt Date: 20080527
  Transmission Date: 20081010
  Serious: Yes (Hospitalization)
  Sender: FDA-Public Use
  Company Number: FABR-11774

PATIENT
  Age: 47 Year
  Sex: Male

DRUGS (8)
  1. FABRAZYME [Suspect]
     Indication: FABRY'S DISEASE
     Dosage: 95 MG, Q2W, INTRAVENOUS; 1 MG/KG, Q2W, INTRAVENOUS
     Route: 042
     Dates: start: 20040120, end: 20050525
  2. FABRAZYME [Suspect]
     Indication: FABRY'S DISEASE
     Dosage: 95 MG, Q2W, INTRAVENOUS; 1 MG/KG, Q2W, INTRAVENOUS
     Route: 042
     Dates: start: 20050707
  3. FABRAZYME [Suspect]
  4. ZETIA [Concomitant]
  5. ALLOPURINOL [Concomitant]
  6. WELLBUTRIN XL [Concomitant]
  7. LIPITOR [Concomitant]
  8. LEXAPRO [Concomitant]

REACTIONS (4)
  - ARTHRALGIA [None]
  - ARTHROPATHY [None]
  - LOCALISED INFECTION [None]
  - MOVEMENT DISORDER [None]
